FAERS Safety Report 8453085-X (Version None)
Quarter: 2012Q2

REPORT INFORMATION
  Report Type: 
  Country: None (occurrence: None)
  Receive Date: 20120620
  Receipt Date: 20120613
  Transmission Date: 20120825
  Serious: Yes (Other)
  Sender: FDA-Public Use
  Company Number: SE-BAXTER-2012BAX003687

PATIENT
  Sex: Female
  Weight: 69 kg

DRUGS (2)
  1. KIOVIG [Suspect]
     Indication: PRIMARY IMMUNODEFICIENCY SYNDROME
     Route: 042
     Dates: start: 20120405, end: 20120405
  2. KIOVIG [Suspect]
     Route: 042
     Dates: start: 20120418, end: 20120418

REACTIONS (3)
  - FLANK PAIN [None]
  - CHILLS [None]
  - CHEST PAIN [None]
